FAERS Safety Report 9454461 (Version 1)
Quarter: 2013Q3

REPORT INFORMATION
  Report Type: Spontaneous
  Country: US (occurrence: US)
  Receive Date: 20130812
  Receipt Date: 20130812
  Transmission Date: 20140515
  Serious: Yes (Hospitalization)
  Sender: FDA-Public Use
  Company Number: US-PERRIGO-13US007999

PATIENT
  Age: 16 Year
  Sex: Female

DRUGS (1)
  1. IBUPROFEN 200 MG 604 [Suspect]
     Indication: HEADACHE
     Dosage: 2 DF, INTERMITTENTLY
     Route: 048

REACTIONS (3)
  - Tubulointerstitial nephritis [Recovering/Resolving]
  - Pyuria [Recovered/Resolved]
  - Pyrexia [Recovered/Resolved]
